FAERS Safety Report 6066318-4 (Version None)
Quarter: 2009Q1

REPORT INFORMATION
  Report Type: 
  Country: None (occurrence: None)
  Receive Date: 20090205
  Receipt Date: 20090105
  Transmission Date: 20090719
  Serious: No
  Sender: FDA-Public Use
  Company Number: US-BAYER-200910267NA

PATIENT
  Age: 48 Year
  Sex: Female

DRUGS (2)
  1. YAZ [Suspect]
     Indication: ABDOMINAL PAIN
     Route: 048
     Dates: start: 20080101
  2. LAMICTAL [Concomitant]

REACTIONS (2)
  - MIGRAINE [None]
  - NO ADVERSE EVENT [None]
